FAERS Safety Report 9286605 (Version 1)
Quarter: 2012Q4

REPORT INFORMATION
  Report Type: Spontaneous
  Country: DK (occurrence: None)
  Receive Date: 20120918
  Receipt Date: 20120918
  Transmission Date: 20130627
  Serious: Yes (Other)
  Sender: FDA-Public Use
  Company Number: 2012MA009612

PATIENT
  Age: 36 Year
  Sex: Female

DRUGS (5)
  1. VENLAFAXINE HCL [Suspect]
     Indication: LOW MOOD
     Route: 048
  2. CLOZARIL (CLOZAPINE) [Suspect]
     Indication: SCHIZOPHRENIA
     Route: 048
     Dates: start: 20111118
  3. RISPERIDONE [Suspect]
     Indication: SCHIZOPHRENIA
     Route: 048
  4. HYOSCINE HYDROBROMIDE [Suspect]
     Route: 048
  5. MIRTAZAPINE [Concomitant]

REACTIONS (2)
  - Tachycardia [None]
  - Therapeutic response decreased [None]
